FAERS Safety Report 14389800 (Version 7)
Quarter: 2019Q3

REPORT INFORMATION
  Report Type: Report from Study
  Country: CA (occurrence: CA)
  Receive Date: 20180115
  Receipt Date: 20190812
  Transmission Date: 20191004
  Serious: Yes (Hospitalization)
  Sender: FDA-Public Use
  Company Number: PHHY2017CA153083

PATIENT
  Age: 59 Year
  Sex: Male

DRUGS (1)
  1. SANDOSTATIN LAR DEPOT [Suspect]
     Active Substance: OCTREOTIDE ACETATE
     Indication: CARCINOID TUMOUR
     Dosage: 30 MG, QMO
     Route: 030
     Dates: start: 20170918

REACTIONS (13)
  - Pollakiuria [Unknown]
  - Dysuria [Unknown]
  - Calculus urinary [Unknown]
  - Nephrolithiasis [Unknown]
  - Haemorrhoids [Unknown]
  - Device occlusion [Unknown]
  - Large intestine polyp [Unknown]
  - Blood pressure systolic increased [Unknown]
  - Vomiting [Unknown]
  - Calculus bladder [Unknown]
  - Nausea [Unknown]
  - Blood urine [Unknown]
  - Diarrhoea [Unknown]

NARRATIVE: CASE EVENT DATE: 20171008
